FAERS Safety Report 7767976-6 (Version None)
Quarter: 2011Q3

REPORT INFORMATION
  Report Type: 
  Country: None (occurrence: None)
  Receive Date: 20110922
  Receipt Date: 20110413
  Transmission Date: 20111222
  Serious: Yes (Hospitalization)
  Sender: FDA-Public Use
  Company Number: US-ASTRAZENECA-2009UW12949

PATIENT
  Age: 58 Year
  Sex: Female

DRUGS (4)
  1. DEXATRIM [Concomitant]
     Dates: start: 20000101
  2. SEROQUEL [Suspect]
     Indication: BIPOLAR DISORDER
     Route: 048
     Dates: start: 20070101
  3. SEROQUEL [Suspect]
     Dosage: 100 TO 200 MG
     Route: 048
     Dates: start: 20080115
  4. ALLEGRA [Concomitant]
     Dates: start: 20080601

REACTIONS (5)
  - SLEEP APNOEA SYNDROME [None]
  - CARDIAC FAILURE CONGESTIVE [None]
  - TYPE 1 DIABETES MELLITUS [None]
  - DIABETES MELLITUS INADEQUATE CONTROL [None]
  - HYPERTENSION [None]
